FAERS Safety Report 23594309 (Version 3)
Quarter: 2024Q1

REPORT INFORMATION
  Report Type: Spontaneous
  Country: JP (occurrence: JP)
  Receive Date: 20240305
  Receipt Date: 20240327
  Transmission Date: 20240410
  Serious: Yes (Hospitalization, Other)
  Sender: FDA-Public Use
  Company Number: JP-002147023-NVSJ2024JP002597

PATIENT
  Age: 82 Year
  Sex: Female
  Weight: 44 kg

DRUGS (17)
  1. ENTRESTO [Suspect]
     Active Substance: SACUBITRIL\VALSARTAN
     Indication: Cardiac failure chronic
     Dosage: 200 MG
     Route: 048
  2. ENTRESTO [Suspect]
     Active Substance: SACUBITRIL\VALSARTAN
     Dosage: 100 MG
     Route: 048
  3. ENTRESTO [Suspect]
     Active Substance: SACUBITRIL\VALSARTAN
     Dosage: 200 MG
     Route: 048
  4. ENTRESTO [Suspect]
     Active Substance: SACUBITRIL\VALSARTAN
     Dosage: UNK
     Route: 065
  5. NIFEDIPINE [Concomitant]
     Active Substance: NIFEDIPINE
     Indication: Product used for unknown indication
     Dosage: 10 MG
     Route: 048
  6. NIFEDIPINE [Concomitant]
     Active Substance: NIFEDIPINE
     Dosage: UNK, DOSE REDUCED
     Route: 048
  7. EDOXABAN TOSYLATE [Concomitant]
     Active Substance: EDOXABAN TOSYLATE
     Indication: Product used for unknown indication
     Dosage: 30 MG
     Route: 048
  8. LANSOPRAZOLE [Concomitant]
     Active Substance: LANSOPRAZOLE
     Indication: Product used for unknown indication
     Dosage: 15 MG
     Route: 048
  9. FUROSEMIDE [Concomitant]
     Active Substance: FUROSEMIDE
     Indication: Product used for unknown indication
     Dosage: 20 MG
     Route: 048
  10. SPIRONOLACTONE [Concomitant]
     Active Substance: SPIRONOLACTONE
     Indication: Product used for unknown indication
     Dosage: 50 MG
     Route: 048
  11. TOLVAPTAN [Concomitant]
     Active Substance: TOLVAPTAN
     Indication: Product used for unknown indication
     Dosage: 7.5 MG
     Route: 048
  12. TOLVAPTAN [Concomitant]
     Active Substance: TOLVAPTAN
     Dosage: 15 MG
     Route: 048
  13. EMPAGLIFLOZIN [Concomitant]
     Active Substance: EMPAGLIFLOZIN
     Indication: Product used for unknown indication
     Dosage: 10 MG
     Route: 048
  14. CALCIUM POLYSTYRENE SULFONATE [Concomitant]
     Active Substance: CALCIUM POLYSTYRENE SULFONATE
     Indication: Product used for unknown indication
     Dosage: 75 G
     Route: 048
  15. CARPERITIDE [Concomitant]
     Active Substance: CARPERITIDE
     Indication: Product used for unknown indication
     Dosage: 0.01 GAMMA
     Route: 065
  16. FUROSEMIDE [Concomitant]
     Active Substance: FUROSEMIDE
     Indication: Product used for unknown indication
     Dosage: 40 MG
     Route: 065
  17. DAPAGLIFLOZIN [Concomitant]
     Active Substance: DAPAGLIFLOZIN
     Indication: Product used for unknown indication
     Dosage: 10 MG
     Route: 065

REACTIONS (20)
  - Cardiac failure chronic [Unknown]
  - Dyspnoea exertional [Recovering/Resolving]
  - Pulmonary congestion [Unknown]
  - Pleural effusion [Unknown]
  - Oedema peripheral [Unknown]
  - Breath sounds abnormal [Unknown]
  - Embolic stroke [Unknown]
  - Atrial fibrillation [Unknown]
  - Bradycardia [Unknown]
  - Mitral valve incompetence [Unknown]
  - Tricuspid valve incompetence [Unknown]
  - Pericarditis constrictive [Unknown]
  - Pericardial calcification [Unknown]
  - Atrial enlargement [Unknown]
  - Weight decreased [Unknown]
  - Nasopharyngitis [Unknown]
  - Blood pressure decreased [Recovered/Resolved]
  - Blood creatinine increased [Unknown]
  - Bundle branch block right [Unknown]
  - Dehydration [Unknown]
